FAERS Safety Report 18345732 (Version 1)
Quarter: 2020Q4

REPORT INFORMATION
  Report Type: Spontaneous
  Country: CA (occurrence: CA)
  Receive Date: 20201005
  Receipt Date: 20201005
  Transmission Date: 20210114
  Serious: Yes (Other)
  Sender: FDA-Public Use
  Company Number: CA-TEVA-2020-CA-1834488

PATIENT
  Sex: Male
  Weight: 96 kg

DRUGS (12)
  1. PERINDOPRIL 4MG [Concomitant]
     Active Substance: PERINDOPRIL
     Dosage: 4 MILLIGRAM DAILY;
  2. LOSEC 20MG [Concomitant]
     Dosage: 20 MILLIGRAM DAILY;
  3. ADVAIR 125 MCG [Concomitant]
     Dosage: 125 MCG 2 PUFFS DAILY
  4. VENTOLIN [Concomitant]
     Active Substance: ALBUTEROL SULFATE
     Dosage: PRN
  5. PREDNISONE 20MG [Suspect]
     Active Substance: PREDNISONE
     Dosage: 20 MILLIGRAM DAILY; IF LESS THAN 20 MG DAILY EXPERIENCES A FLARE UP
  6. LIPITOR 80 MG PFIZER [Concomitant]
     Dosage: 80 MILLIGRAM DAILY;
  7. BISOPROLOL 10MG [Concomitant]
     Dosage: 10 MILLIGRAM DAILY;
  8. XARELTO [Concomitant]
     Active Substance: RIVAROXABAN
     Dosage: 10 MILLIGRAM DAILY;
  9. VITAMIN D3 1000 UNITS [Concomitant]
     Dosage: 1000 IU (INTERNATIONAL UNIT) DAILY;
  10. COENZYME Q [Concomitant]
     Dosage: (ONCE EVERY) 10 DAILY
  11. GLUCOSAMINE [Concomitant]
     Active Substance: GLUCOSAMINE
  12. OMEGA 3 [Concomitant]
     Active Substance: OMEGA-3 FATTY ACIDS
     Dosage: DAILY

REACTIONS (1)
  - Condition aggravated [Unknown]
